FAERS Safety Report 5157766-5 (Version None)
Quarter: 2006Q4

REPORT INFORMATION
  Report Type: 
  Country: None (occurrence: None)
  Receive Date: 20061115
  Receipt Date: 20061031
  Transmission Date: 20070319
  Serious: Yes (Hospitalization)
  Sender: FDA-Public Use
  Company Number: 2006EU002955

PATIENT
  Age: 53 Year
  Sex: Female

DRUGS (9)
  1. FK506   (TACROLIMUS ) [Suspect]
     Indication: LIVER TRANSPLANT
     Dosage: 1.5 MG, UID/QD, ORAL, SEE IMAGE
     Route: 048
     Dates: start: 20050520, end: 20050520
  2. FK506   (TACROLIMUS ) [Suspect]
     Indication: LIVER TRANSPLANT
     Dosage: 1.5 MG, UID/QD, ORAL, SEE IMAGE
     Route: 048
     Dates: start: 20050521, end: 20060523
  3. METHYLPREDNISOLONE [Suspect]
     Indication: LIVER TRANSPLANT
     Dosage: 30 MG, UID/QD
     Dates: start: 20050520, end: 20050621
  4. PREDNISONE TAB [Suspect]
     Indication: LIVER TRANSPLANT
     Dosage: 2 MG, UID/QD
     Dates: start: 20050528, end: 20060523
  5. PIPERILLINE                                    (PIPERACILLIN SODIUM) [Concomitant]
  6. HEPARIN [Concomitant]
  7. FRAXIPARINE  (NADROPARIN CALCIUM) [Concomitant]
  8. ASPEGIC        (OMEPRAZOLE) [Concomitant]
  9. INIPOMP               (PANTOPRAZOLE) [Concomitant]

REACTIONS (11)
  - BACILLUS INFECTION [None]
  - CONJUNCTIVAL HAEMORRHAGE [None]
  - ESCHERICHIA URINARY TRACT INFECTION [None]
  - FACE OEDEMA [None]
  - GENERAL PHYSICAL HEALTH DETERIORATION [None]
  - HYPOALBUMINAEMIA [None]
  - HYPONATRAEMIA [None]
  - OEDEMA PERIPHERAL [None]
  - SKIN HAEMORRHAGE [None]
  - URINARY TRACT INFECTION [None]
  - VOMITING [None]
